FAERS Safety Report 15034321 (Version 4)
Quarter: 2018Q3

REPORT INFORMATION
  Report Type: Spontaneous
  Country: JP (occurrence: JP)
  Receive Date: 20180620
  Receipt Date: 20180830
  Transmission Date: 20181010
  Serious: Yes (Hospitalization, Other)
  Sender: FDA-Public Use
  Company Number: JP-009507513-1805JPN001651J

PATIENT
  Age: 69 Year
  Sex: Male
  Weight: 41 kg

DRUGS (5)
  1. TRAMAL [Concomitant]
     Active Substance: TRAMADOL
     Indication: PAIN
     Dosage: 4 DF, BID
     Route: 048
     Dates: start: 20180409
  2. LOXOPROFEN [Concomitant]
     Active Substance: LOXOPROFEN
     Indication: PAIN
     Dosage: 1 DF, TID
     Route: 048
     Dates: start: 20180409, end: 20180709
  3. FAMOTIDINE D [Concomitant]
     Active Substance: FAMOTIDINE
     Dosage: 1 DF, BID
     Route: 048
     Dates: start: 20180409
  4. KEYTRUDA [Suspect]
     Active Substance: PEMBROLIZUMAB
     Indication: LUNG ADENOCARCINOMA STAGE IV
     Dosage: 200 MG, Q3W
     Route: 041
     Dates: start: 20180514, end: 20180514
  5. LYRICA [Concomitant]
     Active Substance: PREGABALIN
     Indication: PAIN
     Dosage: 1 DF, TID
     Route: 048
     Dates: start: 20180409

REACTIONS (6)
  - Colitis ulcerative [Recovering/Resolving]
  - Interstitial lung disease [Recovering/Resolving]
  - Blood lactate dehydrogenase increased [Unknown]
  - Vomiting [Recovered/Resolved]
  - Cytomegalovirus infection [Recovered/Resolved]
  - Hyperhidrosis [Recovered/Resolved]

NARRATIVE: CASE EVENT DATE: 20180514
